FAERS Safety Report 4425805-2 (Version None)
Quarter: 2004Q3

REPORT INFORMATION
  Report Type: 
  Country: None (occurrence: None)
  Receive Date: 20040719
  Receipt Date: 20030730
  Transmission Date: 20050211
  Serious: Yes (Hospitalization)
  Sender: FDA-Public Use
  Company Number: 176555

PATIENT
  Age: 55 Year
  Sex: Female
  Weight: 127.4608 kg

DRUGS (8)
  1. AVONEX [Suspect]
     Indication: MULTIPLE SCLEROSIS
     Dosage: 30 MCG QW IM
     Route: 030
     Dates: start: 19981001
  2. BACLOFEN [Concomitant]
  3. DETROL [Concomitant]
  4. PREMARIN [Concomitant]
  5. PROVERA [Concomitant]
  6. LEVSIN PB [Concomitant]
  7. PYRIDIUM [Concomitant]
  8. DITROPAN [Concomitant]

REACTIONS (6)
  - BODY TEMPERATURE DECREASED [None]
  - MULTIPLE SCLEROSIS [None]
  - MUSCLE CRAMP [None]
  - OSTEOPOROSIS [None]
  - URINARY TRACT INFECTION [None]
  - WEIGHT INCREASED [None]
